FAERS Safety Report 10215200 (Version 1)
Quarter: 2014Q2

REPORT INFORMATION
  Report Type: Report from Study
  Country: BR (occurrence: BR)
  Receive Date: 20140603
  Receipt Date: 20140603
  Transmission Date: 20141212
  Serious: Yes (Hospitalization, Other)
  Sender: FDA-Public Use
  Company Number: PHHY2014BR065544

PATIENT
  Age: 83 Year
  Sex: Female
  Weight: 85 kg

DRUGS (3)
  1. DIOVAN AMLO FIX [Suspect]
     Dosage: UNK UKN, UNK
  2. CAPTOPRIL [Suspect]
     Indication: BLOOD PRESSURE ABNORMAL
     Dosage: 2 DF, DAILY (EVERY 8 HOURS, AS REPORTED))
     Route: 048
  3. GLIBENCLAMIDE [Concomitant]
     Dosage: UNK UKN, UNK

REACTIONS (2)
  - Urinary tract infection [Unknown]
  - Cerebrovascular accident [Recovering/Resolving]
